FAERS Safety Report 18087741 (Version 1)
Quarter: 2020Q3

REPORT INFORMATION
  Report Type: Report from Study
  Country: DE (occurrence: DE)
  Receive Date: 20200729
  Receipt Date: 20200729
  Transmission Date: 20201103
  Serious: No
  Sender: FDA-Public Use
  Company Number: DE-SHIRE-DE201738143

PATIENT

DRUGS (1)
  1. TEDUGLUTIDE [Suspect]
     Active Substance: TEDUGLUTIDE
     Indication: SHORT-BOWEL SYNDROME
     Dosage: UNK
     Route: 065
     Dates: start: 20160412

REACTIONS (2)
  - Arthralgia [Not Recovered/Not Resolved]
  - Intra-abdominal haemangioma [Not Recovered/Not Resolved]

NARRATIVE: CASE EVENT DATE: 20170201
